FAERS Safety Report 9199864 (Version 2)
Quarter: 2013Q2

REPORT INFORMATION
  Report Type: Spontaneous
  Country: US (occurrence: US)
  Receive Date: 20130329
  Receipt Date: 20130403
  Transmission Date: 20140414
  Serious: Yes (Hospitalization)
  Sender: FDA-Public Use
  Company Number: US-ROCHE-1206727

PATIENT
  Age: 15 Year
  Sex: Male

DRUGS (4)
  1. NAPROXEN [Suspect]
     Indication: PRODUCT USED FOR UNKNOWN INDICATION
     Route: 065
  2. NAPROXEN [Suspect]
     Dosage: 150 PILLS
     Route: 065
  3. IBUPROFEN [Suspect]
     Indication: PRODUCT USED FOR UNKNOWN INDICATION
     Route: 065
  4. IBUPROFEN [Suspect]
     Dosage: DOSE: 50
     Route: 065

REACTIONS (8)
  - Overdose [Unknown]
  - Mental status changes [Unknown]
  - Heart rate increased [Unknown]
  - Blood pressure decreased [Unknown]
  - Acidosis [Recovered/Resolved]
  - Vomiting [Unknown]
  - White blood cell count increased [Unknown]
  - Blood glucose increased [Unknown]
